FAERS Safety Report 10034414 (Version 1)
Quarter: 2014Q1

REPORT INFORMATION
  Report Type: Spontaneous
  Country: US (occurrence: None)
  Receive Date: 20140324
  Receipt Date: 20140324
  Transmission Date: 20141002
  Serious: Yes (Hospitalization, Disabling)
  Sender: FDA-Public Use
  Company Number: None

PATIENT
  Age: 58 Year
  Sex: Female

DRUGS (2)
  1. CORTISONE [Suspect]
     Indication: PERIARTHRITIS
     Dates: start: 20140228
  2. CORTISONE [Suspect]
     Indication: ROTATOR CUFF SYNDROME
     Dates: start: 20140228

REACTIONS (5)
  - Vertigo [None]
  - Malaise [None]
  - Unevaluable event [None]
  - Malaise [None]
  - Feeling abnormal [None]
